FAERS Safety Report 15181158 (Version 3)
Quarter: 2020Q1

REPORT INFORMATION
  Report Type: Report from Study
  Country: None (occurrence: US)
  Receive Date: 20180723
  Receipt Date: 20200123
  Transmission Date: 20200409
  Serious: Yes (Other)
  Sender: FDA-Public Use
  Company Number: US-ABBVIE-18K-163-2422359-00

PATIENT
  Age: 73 Year
  Sex: Female

DRUGS (3)
  1. VENCLEXTA [Suspect]
     Active Substance: VENETOCLAX
     Indication: CHRONIC LYMPHOCYTIC LEUKAEMIA
  2. VENCLEXTA [Suspect]
     Active Substance: VENETOCLAX
     Indication: NON-HODGKIN^S LYMPHOMA
  3. VENCLEXTA [Suspect]
     Active Substance: VENETOCLAX
     Indication: RICHTER^S SYNDROME
     Route: 048
     Dates: start: 2016, end: 20180703

REACTIONS (12)
  - Musculoskeletal stiffness [Not Recovered/Not Resolved]
  - Non-Hodgkin^s lymphoma [Not Recovered/Not Resolved]
  - Product use in unapproved indication [Unknown]
  - Asthenia [Not Recovered/Not Resolved]
  - Pain in extremity [Recovered/Resolved]
  - Blister [Recovered/Resolved]
  - Muscle spasms [Not Recovered/Not Resolved]
  - Bone pain [Not Recovered/Not Resolved]
  - Gait disturbance [Not Recovered/Not Resolved]
  - Herpes zoster [Unknown]
  - Richter^s syndrome [Unknown]
  - Oedema [Recovering/Resolving]

NARRATIVE: CASE EVENT DATE: 20180706
